FAERS Safety Report 25493428 (Version 1)
Quarter: 2025Q2

REPORT INFORMATION
  Report Type: Spontaneous
  Country: FR (occurrence: FR)
  Receive Date: 20250630
  Receipt Date: 20250630
  Transmission Date: 20250717
  Serious: Yes (Other)
  Sender: MYLAN
  Company Number: None

PATIENT
  Age: 36 Year
  Sex: Male

DRUGS (4)
  1. ACETAMINOPHEN [Suspect]
     Active Substance: ACETAMINOPHEN
     Indication: Product used for unknown indication
     Dosage: 9 GRAM, QD (9G/D BASED ON REIMBURSEMENT CALCULATIONS
     Dates: start: 202405, end: 202505
  2. OXYCODONE [Suspect]
     Active Substance: OXYCODONE
     Indication: Product used for unknown indication
  3. OXYCODONE [Suspect]
     Active Substance: OXYCODONE
     Dosage: 1.514 GRAM, QD (1,514G/D BASED ON REIMBURSEMENT CALCULATIONS)
     Dates: start: 202211, end: 202311
  4. OXYCODONE [Suspect]
     Active Substance: OXYCODONE
     Dosage: 2.555 GRAM, QD (2,555G/D BASED ON REIMBURSEMENT CALCULATIONS)
     Dates: start: 202405, end: 202505

REACTIONS (1)
  - Drug abuse [Not Recovered/Not Resolved]
